FAERS Safety Report 8571874-8 (Version None)
Quarter: 2012Q3

REPORT INFORMATION
  Report Type: 
  Country: None (occurrence: None)
  Receive Date: 20120806
  Receipt Date: 20120802
  Transmission Date: 20120928
  Serious: No
  Sender: FDA-Public Use
  Company Number: US-PFIZER INC-2012188418

PATIENT
  Age: 29 Year
  Sex: Female
  Weight: 117.91 kg

DRUGS (6)
  1. CHANTIX [Suspect]
     Indication: SMOKING CESSATION THERAPY
     Dosage: 0.5 MG, 1X/DAY
     Route: 048
     Dates: start: 20120718
  2. PAXIL [Concomitant]
     Indication: ANXIETY
     Dosage: UNK
  3. RANITIDINE [Concomitant]
     Dosage: UNK
  4. CHANTIX [Suspect]
     Dosage: 1 MG, 2X/DAY
     Route: 048
  5. EPITOL [Concomitant]
     Dosage: UNK
  6. ORTHO-NOVUM [Concomitant]
     Indication: CONTRACEPTION
     Dosage: UNK

REACTIONS (2)
  - CRYING [None]
  - EMOTIONAL DISTRESS [None]
